FAERS Safety Report 15880936 (Version 1)
Quarter: 2019Q1

REPORT INFORMATION
  Report Type: Spontaneous
  Country: FR (occurrence: FR)
  Receive Date: 20190128
  Receipt Date: 20190128
  Transmission Date: 20190417
  Serious: Yes (Other)
  Sender: FDA-Public Use
  Company Number: FR-MYLANLABS-2019M1006856

PATIENT
  Age: 18 Year
  Sex: Female

DRUGS (3)
  1. GENTAMICINE                        /00047101/ [Suspect]
     Active Substance: GENTAMICIN
     Indication: OSTEITIS
     Dosage: UNK
     Route: 042
     Dates: start: 20151107, end: 20151109
  2. VANCOMYCIN [Suspect]
     Active Substance: VANCOMYCIN
     Indication: OSTEITIS
     Dosage: 1 GRAM, QD
     Route: 042
     Dates: start: 20151028, end: 20151111
  3. RIFAMPICINE [Suspect]
     Active Substance: RIFAMPIN
     Indication: OSTEITIS
     Dosage: 600 MILLIGRAM, QD
     Route: 042
     Dates: start: 20151028, end: 20151111

REACTIONS (3)
  - Leukopenia [Recovered/Resolved]
  - Toxic skin eruption [Recovering/Resolving]
  - Neutropenia [Recovered/Resolved]

NARRATIVE: CASE EVENT DATE: 20151109
